FAERS Safety Report 4577321-5 (Version None)
Quarter: 2005Q1

REPORT INFORMATION
  Report Type: 
  Country: None (occurrence: None)
  Receive Date: 20050210
  Receipt Date: 20041019
  Transmission Date: 20050727
  Serious: Yes (Hospitalization)
  Sender: FDA-Public Use
  Company Number: US-GLAXOSMITHKLINE-A0530381A

PATIENT
  Age: 42 Year
  Sex: Female

DRUGS (2)
  1. LAMICTAL [Suspect]
     Indication: BIPOLAR DISORDER
     Route: 048
     Dates: start: 20040201, end: 20041017
  2. NO CONCURRENT MEDICATION [Concomitant]

REACTIONS (11)
  - ANAPHYLACTIC SHOCK [None]
  - BRONCHOSPASM [None]
  - BURNING SENSATION [None]
  - DYSPNOEA [None]
  - FACE OEDEMA [None]
  - HYPOAESTHESIA [None]
  - LARYNGEAL OEDEMA [None]
  - OROPHARYNGEAL SWELLING [None]
  - PARAESTHESIA [None]
  - PHARMACEUTICAL PRODUCT COMPLAINT [None]
  - SWOLLEN TONGUE [None]
